FAERS Safety Report 23908869 (Version 1)
Quarter: 2024Q2

REPORT INFORMATION
  Report Type: Spontaneous
  Country: US (occurrence: None)
  Receive Date: 20240524
  Receipt Date: 20240524
  Transmission Date: 20240716
  Serious: No
  Sender: FDA-Public Use
  Company Number: None

PATIENT

DRUGS (2)
  1. ALLOPURINOL [Suspect]
     Active Substance: ALLOPURINOL
  2. ALLOPURINOL [Suspect]
     Active Substance: ALLOPURINOL

REACTIONS (3)
  - Product prescribing error [None]
  - Contraindicated product administered [None]
  - Dialysis [None]
